FAERS Safety Report 13450089 (Version 1)
Quarter: 2017Q2

REPORT INFORMATION
  Report Type: Spontaneous
  Country: US (occurrence: US)
  Receive Date: 20170417
  Receipt Date: 20170417
  Transmission Date: 20170830
  Serious: No
  Sender: FDA-Public Use
  Company Number: US-BION-20160637

PATIENT
  Age: 79 Year
  Sex: Male
  Weight: 69.4 kg

DRUGS (4)
  1. GENERIC 81MG ASPIRIN [Concomitant]
  2. SYNTHROID [Concomitant]
     Active Substance: LEVOTHYROXINE SODIUM
  3. ALEVE [Suspect]
     Active Substance: NAPROXEN SODIUM
     Dosage: 2 DF
     Route: 048
     Dates: start: 20161018
  4. METOPROLOLSUCCINAT [Concomitant]
     Active Substance: METOPROLOL SUCCINATE

REACTIONS (3)
  - Micturition frequency decreased [Unknown]
  - Product use in unapproved indication [Unknown]
  - Expired product administered [Unknown]
